FAERS Safety Report 17221267 (Version 4)
Quarter: 2021Q1

REPORT INFORMATION
  Report Type: Report from Study
  Country: US (occurrence: US)
  Receive Date: 20191231
  Receipt Date: 20210209
  Transmission Date: 20210419
  Serious: No
  Sender: FDA-Public Use
  Company Number: NVSC2019US083042

PATIENT
  Age: 76 Year
  Sex: Female

DRUGS (4)
  1. ENTRESTO [Suspect]
     Active Substance: SACUBITRIL\VALSARTAN
     Dosage: (24 SACUBITRIL, 26 MG VALSARTAN)
     Route: 065
  2. ENTRESTO [Suspect]
     Active Substance: SACUBITRIL\VALSARTAN
     Indication: CARDIAC FAILURE CHRONIC
     Dosage: 24 SACUBITRIL, 26 MG VALSARTAN
     Route: 048
     Dates: start: 20191022
  3. ENTRESTO [Suspect]
     Active Substance: SACUBITRIL\VALSARTAN
     Dosage: UNK UNK, BID, (24.26 MG)
     Route: 065
  4. ENTRESTO [Suspect]
     Active Substance: SACUBITRIL\VALSARTAN
     Dosage: (24 SACUBITRIL, 26 MG VALSARTAN ONCE DAILY AT NIGHT)
     Route: 065

REACTIONS (12)
  - Rhinorrhoea [Unknown]
  - Dyspepsia [Not Recovered/Not Resolved]
  - Product dose omission issue [Not Recovered/Not Resolved]
  - Inappropriate schedule of product administration [Unknown]
  - Cough [Not Recovered/Not Resolved]
  - Product prescribing error [Unknown]
  - Fatigue [Recovering/Resolving]
  - Ejection fraction abnormal [Unknown]
  - Secretion discharge [Unknown]
  - Depression [Recovering/Resolving]
  - Blood potassium decreased [Not Recovered/Not Resolved]
  - Hypotension [Unknown]

NARRATIVE: CASE EVENT DATE: 20191217
